FAERS Safety Report 7323020-6 (Version None)
Quarter: 2011Q1

REPORT INFORMATION
  Report Type: 
  Country: None (occurrence: None)
  Receive Date: 20110301
  Receipt Date: 20110223
  Transmission Date: 20110831
  Serious: Yes (Death, Other)
  Sender: FDA-Public Use
  Company Number: PHHY2011AU14710

PATIENT

DRUGS (4)
  1. VALPROATE SODIUM [Concomitant]
  2. CLOZAPINE [Suspect]
     Indication: SCHIZOPHRENIA
     Dosage: 200 MG, QD
  3. VENLAFAXINE [Concomitant]
  4. OLANZAPINE [Concomitant]

REACTIONS (4)
  - UPPER RESPIRATORY TRACT INFECTION [None]
  - MYOCARDITIS [None]
  - CORONARY ARTERY STENOSIS [None]
  - PYREXIA [None]
